FAERS Safety Report 10200256 (Version 1)
Quarter: 2014Q2

REPORT INFORMATION
  Report Type: Spontaneous
  Country: US (occurrence: US)
  Receive Date: 20140527
  Receipt Date: 20140527
  Transmission Date: 20141212
  Serious: No
  Sender: FDA-Public Use
  Company Number: US-SA-2013SA136234

PATIENT
  Sex: 0

DRUGS (2)
  1. CAMPATH [Suspect]
     Indication: MULTIPLE SCLEROSIS
     Route: 065
     Dates: start: 20131209
  2. SOLUMEDROL [Concomitant]
     Indication: MULTIPLE SCLEROSIS

REACTIONS (1)
  - Abdominal pain upper [Unknown]
